FAERS Safety Report 19205227 (Version 2)
Quarter: 2021Q2

REPORT INFORMATION
  Report Type: Spontaneous
  Country: GB (occurrence: GB)
  Receive Date: 20210503
  Receipt Date: 20210602
  Transmission Date: 20210717
  Serious: Yes (Other)
  Sender: FDA-Public Use
  Company Number: GB-DRREDDYS-GER/UKI/21/0134843

PATIENT
  Age: 51 Year
  Sex: Female

DRUGS (7)
  1. UTROGESTAN [Concomitant]
     Active Substance: PROGESTERONE
     Indication: MENOPAUSE
     Route: 065
     Dates: start: 20201101
  2. IBUPROFEN. [Suspect]
     Active Substance: IBUPROFEN
     Indication: PRODUCT USED FOR UNKNOWN INDICATION
     Dosage: UNK
     Route: 065
  3. PFIZER?BIONTECH COVID?19 VACCINE [Suspect]
     Active Substance: TOZINAMERAN
     Indication: PRODUCT USED FOR UNKNOWN INDICATION
     Dosage: 2 DF
     Route: 065
     Dates: start: 20210420
  4. PARACETAMOL [Concomitant]
     Active Substance: ACETAMINOPHEN
     Indication: HEADACHE
     Route: 065
  5. PFIZER?BIONTECH COVID?19 VACCINE [Suspect]
     Active Substance: TOZINAMERAN
     Indication: IMMUNISATION
  6. OESTROGEL [Concomitant]
     Active Substance: ESTRADIOL
     Indication: MENOPAUSE
     Route: 065
     Dates: start: 20201101
  7. LORATADINE. [Concomitant]
     Active Substance: LORATADINE
     Indication: HYPERSENSITIVITY
     Route: 065
     Dates: start: 20210310

REACTIONS (5)
  - Fatigue [Unknown]
  - Swelling face [Not Recovered/Not Resolved]
  - Headache [Recovering/Resolving]
  - Pain [Unknown]
  - Lymphadenopathy [Not Recovered/Not Resolved]

NARRATIVE: CASE EVENT DATE: 20210421
